FAERS Safety Report 18162106 (Version 1)
Quarter: 2020Q3

REPORT INFORMATION
  Report Type: Spontaneous
  Country: US (occurrence: US)
  Receive Date: 20200818
  Receipt Date: 20200818
  Transmission Date: 20201103
  Serious: Yes (Hospitalization, Other)
  Sender: FDA-Public Use
  Company Number: US-SHILPA MEDICARE LIMITED-SML-US-2020-00224

PATIENT
  Age: 39 Year
  Sex: Male

DRUGS (2)
  1. NAB?PACLITAXEL [Suspect]
     Active Substance: PACLITAXEL
     Indication: PANCREATIC CARCINOMA METASTATIC
     Dosage: 125 MG/M2 ON DAYS 1, 8 AND 15 OF A 28 DAY CYCLE.
     Route: 065
  2. GEMCITABINE, UNKNOWN [Suspect]
     Active Substance: GEMCITABINE
     Indication: PANCREATIC CARCINOMA METASTATIC
     Dosage: 1,000 MG/M2 ON DAYS 1, 8 AND 15 OF A 28?DAY CYCLE.
     Route: 065

REACTIONS (13)
  - Thrombotic microangiopathy [Recovering/Resolving]
  - Renal failure [Unknown]
  - Retinal haemorrhage [Unknown]
  - Retinal oedema [Unknown]
  - Cytopenia [Unknown]
  - Malignant hypertension [Unknown]
  - Scrotal oedema [Unknown]
  - Oedema [Unknown]
  - Retinal vein occlusion [Unknown]
  - Neuropsychiatric symptoms [Unknown]
  - Ischaemia [Unknown]
  - Generalised oedema [Recovered/Resolved]
  - Therapy partial responder [Unknown]
